FAERS Safety Report 16434020 (Version 1)
Quarter: 2019Q2

REPORT INFORMATION
  Report Type: Spontaneous
  Country: FR (occurrence: FR)
  Receive Date: 20190614
  Receipt Date: 20190614
  Transmission Date: 20190711
  Serious: Yes (Hospitalization)
  Sender: FDA-Public Use
  Company Number: FR-ANIPHARMA-2019-FR-000145

PATIENT
  Age: 73 Year
  Sex: Male

DRUGS (5)
  1. ZYLORIC [Suspect]
     Active Substance: ALLOPURINOL
     Dosage: 300 MG UNK
     Route: 048
     Dates: end: 20130603
  2. KARDEGIC [Suspect]
     Active Substance: ASPIRIN DL-LYSINE
     Dosage: 75 MG UNK
     Route: 048
  3. INIPOMP [Suspect]
     Active Substance: PANTOPRAZOLE SODIUM
     Dosage: 20 MG UNK
     Route: 048
  4. SOTALEX [Suspect]
     Active Substance: SOTALOL
     Dosage: 80 MG UNK
     Route: 048
  5. CANDESARTAN CILEXETIL. [Suspect]
     Active Substance: CANDESARTAN CILEXETIL
     Indication: PRODUCT USED FOR UNKNOWN INDICATION
     Dosage: UNK
     Route: 048

REACTIONS (1)
  - Pemphigoid [Recovered/Resolved]

NARRATIVE: CASE EVENT DATE: 201304
